FAERS Safety Report 20964983 (Version 1)
Quarter: 2022Q2

REPORT INFORMATION
  Report Type: Spontaneous
  Country: US (occurrence: US)
  Receive Date: 20220616
  Receipt Date: 20220616
  Transmission Date: 20220720
  Serious: No
  Sender: FDA-Public Use
  Company Number: US-AMGEN-USASP2022100847

PATIENT
  Sex: Female

DRUGS (9)
  1. LUMAKRAS [Suspect]
     Active Substance: SOTORASIB
     Indication: Lung carcinoma cell type unspecified recurrent
     Dosage: 960 MILLIGRAM
     Route: 048
     Dates: start: 20211217
  2. ZOLOFT [Concomitant]
     Active Substance: SERTRALINE HYDROCHLORIDE
     Dosage: 25 MILLIGRAM
  3. ERYTHROMYCIN [Concomitant]
     Active Substance: ERYTHROMYCIN
     Dosage: 500 MILLIGRAM
  4. GUAIFENESIN [Concomitant]
     Active Substance: GUAIFENESIN
     Dosage: 100-10 MILLIGRAM
  5. MUCINEX [Concomitant]
     Active Substance: GUAIFENESIN
     Dosage: 600 MILLIGRAM
  6. VITAMIN C [Concomitant]
     Active Substance: ASCORBIC ACID
     Dosage: 1000 MILLIGRAM
  7. VITAMIN E [Concomitant]
     Active Substance: .ALPHA.-TOCOPHEROL
     Dosage: 1000 UNIT
  8. ALBUTEROL [Concomitant]
     Active Substance: ALBUTEROL
  9. MONTELUKAST [Concomitant]
     Active Substance: MONTELUKAST SODIUM
     Dosage: 10 MILLIGRAM

REACTIONS (1)
  - Prescribed underdose [Unknown]
